FAERS Safety Report 15402677 (Version 1)
Quarter: 2018Q3

REPORT INFORMATION
  Report Type: Spontaneous
  Country: US (occurrence: US)
  Receive Date: 20180917
  Receipt Date: 20180917
  Transmission Date: 20181010
  Serious: Yes (Other)
  Sender: FDA-Public Use
  Company Number: None

PATIENT
  Age: 85 Year
  Sex: Male
  Weight: 72 kg

DRUGS (10)
  1. NITRO [Concomitant]
     Active Substance: NITROGLYCERIN
  2. PANTOPRAZOLE [Concomitant]
     Active Substance: PANTOPRAZOLE
  3. ASPIRIN. [Concomitant]
     Active Substance: ASPIRIN
  4. FLUTICASONE + SALMETEROL INHALER ADVAIR HFA [Concomitant]
  5. ATORVASTATIN [Concomitant]
     Active Substance: ATORVASTATIN
  6. METOPROLOL. [Concomitant]
     Active Substance: METOPROLOL
  7. TRAMADOL HCL 50 MG TABLETS [Suspect]
     Active Substance: TRAMADOL HYDROCHLORIDE
     Indication: PAIN
     Dosage: ?          QUANTITY:1 TABLET(S);?
     Route: 048
     Dates: start: 20180817, end: 20180907
  8. MULTIVITAMIN [Concomitant]
     Active Substance: VITAMINS
  9. CLOPODOGREL BISULFATE [Concomitant]
  10. VITAMIN D3 [Concomitant]
     Active Substance: CHOLECALCIFEROL

REACTIONS (9)
  - Faeces hard [None]
  - Dizziness [None]
  - Fatigue [None]
  - Insomnia [None]
  - Asthenia [None]
  - Dry mouth [None]
  - Nausea [None]
  - Bladder discomfort [None]
  - Pollakiuria [None]

NARRATIVE: CASE EVENT DATE: 20180817
